FAERS Safety Report 8982178 (Version 3)
Quarter: 2013Q1

REPORT INFORMATION
  Report Type: Spontaneous
  Country: CA (occurrence: CA)
  Receive Date: 20121222
  Receipt Date: 20130226
  Transmission Date: 20140127
  Serious: Yes (Other)
  Sender: FDA-Public Use
  Company Number: CA-BAUSCH-BL-2012-002337

PATIENT
  Age: 29 None
  Sex: Female

DRUGS (3)
  1. BESIVANCE (BESIFLOXACIN OPHTHALMIC SUSPENSION) 0.6% [Suspect]
     Indication: POSTOPERATIVE CARE
     Dosage: DROPS; OPHTHALMIC
     Route: 047
     Dates: start: 20121101, end: 20121109
  2. LOTEMAX (LOTEPREDNOL ETABONATE OPHTHALMIC SUSPENSION 0.5%) [Suspect]
     Indication: POSTOPERATIVE CARE
     Dosage: DROPS; OPHTHALMIC
     Route: 047
     Dates: start: 20121101, end: 20121109
  3. LIPOSIC OPHTHALMIC DROPS [Suspect]
     Indication: POSTOPERATIVE CARE
     Dosage: DROPS; OPHTHALMIC
     Route: 047
     Dates: start: 20121101, end: 20121109

REACTIONS (12)
  - Diffuse lamellar keratitis [Unknown]
  - Corneal infiltrates [Unknown]
  - Punctate keratitis [Recovered/Resolved]
  - Corneal striae [Recovered/Resolved]
  - Eye oedema [Recovered/Resolved]
  - Ocular discomfort [Unknown]
  - Corneal deposits [Recovered/Resolved]
  - Vision blurred [Unknown]
  - Dry eye [Unknown]
  - Ocular hyperaemia [Unknown]
  - Photophobia [Unknown]
  - Off label use [Recovered/Resolved]
